FAERS Safety Report 7618134-7 (Version None)
Quarter: 2011Q3

REPORT INFORMATION
  Report Type: 
  Country: None (occurrence: None)
  Receive Date: 20110718
  Receipt Date: 20110624
  Transmission Date: 20111222
  Serious: Yes (Death, Hospitalization)
  Sender: FDA-Public Use
  Company Number: US-GLAXOSMITHKLINE-A0788932A

PATIENT
  Age: 82 Year
  Sex: Male

DRUGS (1)
  1. AVANDIA [Suspect]
     Indication: DIABETES MELLITUS
     Dosage: 8MG PER DAY
     Route: 048
     Dates: start: 20020101, end: 20071107

REACTIONS (6)
  - RENAL DISORDER [None]
  - BRAIN OEDEMA [None]
  - LUNG DISORDER [None]
  - DEATH [None]
  - VASCULAR GRAFT [None]
  - CEREBROVASCULAR ACCIDENT [None]
